FAERS Safety Report 25401323 (Version 2)
Quarter: 2025Q3

REPORT INFORMATION
  Report Type: Report from Study
  Country: CA (occurrence: CA)
  Receive Date: 20250605
  Receipt Date: 20250711
  Transmission Date: 20251020
  Serious: Yes (Hospitalization, Other)
  Sender: ROCHE
  Company Number: CA-ROCHE-10000186098

PATIENT
  Age: 72 Year
  Sex: Male

DRUGS (13)
  1. ACTEMRA ACTPEN [Suspect]
     Active Substance: TOCILIZUMAB
     Indication: Giant cell arteritis
     Route: 058
     Dates: start: 20190618, end: 2025
  2. PERINDOPRIL [Concomitant]
     Active Substance: PERINDOPRIL
  3. CRESTOR [Concomitant]
     Active Substance: ROSUVASTATIN CALCIUM
  4. IRON [Concomitant]
     Active Substance: IRON
  5. PANTOPRAZOLE SODIUM [Concomitant]
     Active Substance: PANTOPRAZOLE SODIUM
  6. PREDNISONE [Concomitant]
     Active Substance: PREDNISONE
  7. ZANTAC [Concomitant]
     Active Substance: RANITIDINE HYDROCHLORIDE
  8. genumet [Concomitant]
  9. Invocanana [Concomitant]
  10. MESTINON [Concomitant]
     Active Substance: PYRIDOSTIGMINE BROMIDE
  11. VITAMIN B12 [Concomitant]
     Active Substance: CYANOCOBALAMIN
  12. INSULIN NOS [Concomitant]
     Active Substance: INSULIN NOS
  13. VITAMIN D [Concomitant]
     Active Substance: VITAMIN D NOS

REACTIONS (16)
  - Renal failure [Unknown]
  - Seizure [Unknown]
  - Myasthenia gravis [Unknown]
  - Skin cancer [Unknown]
  - Wound [Unknown]
  - Infection [Unknown]
  - Headache [Unknown]
  - Dialysis [Unknown]
  - Fall [Unknown]
  - Night sweats [Unknown]
  - Feeding tube user [Unknown]
  - Haematological infection [Unknown]
  - Diarrhoea [Not Recovered/Not Resolved]
  - Bedridden [Unknown]
  - Ill-defined disorder [Unknown]
  - Dyskinesia [Unknown]

NARRATIVE: CASE EVENT DATE: 20230101
